FAERS Safety Report 18808948 (Version 3)
Quarter: 2023Q2

REPORT INFORMATION
  Report Type: Spontaneous
  Country: US (occurrence: US)
  Receive Date: 20210129
  Receipt Date: 20230504
  Transmission Date: 20230722
  Serious: Yes (Hospitalization, Other)
  Sender: FDA-Public Use
  Company Number: US-GILEAD-2021-0513424

PATIENT
  Sex: Female
  Weight: 98.413 kg

DRUGS (23)
  1. ATRIPLA [Suspect]
     Active Substance: EFAVIRENZ\EMTRICITABINE\TENOFOVIR DISOPROXIL FUMARATE
     Indication: HIV infection
     Dosage: UNK
     Route: 048
     Dates: start: 2010
  2. ATRIPLA [Suspect]
     Active Substance: EFAVIRENZ\EMTRICITABINE\TENOFOVIR DISOPROXIL FUMARATE
     Dosage: UNK
     Route: 048
     Dates: start: 201003, end: 2016
  3. GENVOYA [Concomitant]
     Active Substance: COBICISTAT\ELVITEGRAVIR\EMTRICITABINE\TENOFOVIR ALAFENAMIDE FUMARATE
  4. TIVICAY [Concomitant]
     Active Substance: DOLUTEGRAVIR SODIUM
  5. LASIX [Concomitant]
     Active Substance: FUROSEMIDE
  6. ASPIRIN [Concomitant]
     Active Substance: ASPIRIN
  7. VITAMIN D3 [Concomitant]
     Active Substance: CHOLECALCIFEROL
  8. LAMIVUDINE [Concomitant]
     Active Substance: LAMIVUDINE
  9. PRAVASTATIN [Concomitant]
     Active Substance: PRAVASTATIN
  10. FEBUXOSTAT [Concomitant]
     Active Substance: FEBUXOSTAT
  11. OLANZAPINE [Concomitant]
     Active Substance: OLANZAPINE
  12. LEVOTHYROXINE [Concomitant]
     Active Substance: LEVOTHYROXINE
  13. MIRTAZAPINE [Concomitant]
     Active Substance: MIRTAZAPINE
  14. CLOPIDOGREL [Concomitant]
     Active Substance: CLOPIDOGREL BISULFATE
  15. AMIODARONE [Concomitant]
     Active Substance: AMIODARONE
  16. DAPSONE [Concomitant]
     Active Substance: DAPSONE
  17. GABAPENTIN [Concomitant]
     Active Substance: GABAPENTIN
  18. FAMOTIDINE [Concomitant]
     Active Substance: FAMOTIDINE
  19. ALBUTEROL [Concomitant]
     Active Substance: ALBUTEROL
  20. NITROGLYCERIN [Concomitant]
     Active Substance: NITROGLYCERIN
  21. LACTULOSE [Concomitant]
     Active Substance: LACTULOSE
  22. TYLENOL [Concomitant]
     Active Substance: ACETAMINOPHEN
  23. ROBITUSSIN (GUAIFENESIN) [Concomitant]
     Active Substance: GUAIFENESIN

REACTIONS (17)
  - Cerebrovascular accident [Recovered/Resolved]
  - Renal failure [Not Recovered/Not Resolved]
  - Pneumonia [Recovered/Resolved]
  - Chronic kidney disease [Not Recovered/Not Resolved]
  - Renal impairment [Not Recovered/Not Resolved]
  - Blood creatinine increased [Not Recovered/Not Resolved]
  - Pain [Not Recovered/Not Resolved]
  - Emotional distress [Not Recovered/Not Resolved]
  - Anxiety [Not Recovered/Not Resolved]
  - Anhedonia [Not Recovered/Not Resolved]
  - Quality of life decreased [Not Recovered/Not Resolved]
  - Lymphoedema [Unknown]
  - Hypertension [Unknown]
  - Nephropathy [Unknown]
  - Fatigue [Not Recovered/Not Resolved]
  - Gout [Recovered/Resolved]
  - Vitamin D deficiency [Not Recovered/Not Resolved]

NARRATIVE: CASE EVENT DATE: 20100101
